FAERS Safety Report 21125556 (Version 1)
Quarter: 2022Q3

REPORT INFORMATION
  Report Type: Spontaneous
  Country: US (occurrence: None)
  Receive Date: 20220725
  Receipt Date: 20220725
  Transmission Date: 20221026
  Serious: No
  Sender: FDA-Public Use
  Company Number: None

PATIENT
  Age: 76 Year
  Sex: Male
  Weight: 82.1 kg

DRUGS (15)
  1. IBRANCE [Suspect]
     Active Substance: PALBOCICLIB
     Indication: Breast cancer male
     Dosage: OTHER FREQUENCY : 3W, 1W OFF;?
     Route: 048
     Dates: start: 202101
  2. AZELASTINE [Concomitant]
     Active Substance: AZELASTINE
  3. CALCIUM-MAGNESIUM-ZINC [Concomitant]
  4. CLOTRIMAZOLE AND BETAMETHASONE DIPROPIONATE [Concomitant]
     Active Substance: BETAMETHASONE\BETAMETHASONE DIPROPIONATE\CLOTRIMAZOLE
  5. COMBIGAN [Concomitant]
     Active Substance: BRIMONIDINE TARTRATE\TIMOLOL MALEATE
  6. FAMOTIDINE [Concomitant]
     Active Substance: FAMOTIDINE
  7. FLUTICASONE PROPIONATE [Concomitant]
     Active Substance: FLUTICASONE PROPIONATE
  8. LETROZOLE [Concomitant]
     Active Substance: LETROZOLE
  9. LISINOPRIL [Concomitant]
     Active Substance: LISINOPRIL
  10. LUMIGEN [Concomitant]
  11. MAGNESIUM GLUCONATE [Concomitant]
     Active Substance: MAGNESIUM GLUCONATE
  12. MULTI FOR HIM [Concomitant]
  13. PREDNISOLONE [Concomitant]
     Active Substance: PREDNISOLONE
  14. VITAMIN D3 [Concomitant]
     Active Substance: CHOLECALCIFEROL
  15. XGEVA [Concomitant]
     Active Substance: DENOSUMAB

REACTIONS (2)
  - Neutrophil count decreased [None]
  - Cerebrovascular accident [None]
